FAERS Safety Report 23972116 (Version 1)
Quarter: 2024Q2

REPORT INFORMATION
  Report Type: Spontaneous
  Country: US (occurrence: None)
  Receive Date: 20240612
  Receipt Date: 20240612
  Transmission Date: 20240716
  Serious: Yes (unspecified)
  Sender: FDA-Public Use
  Company Number: None

PATIENT
  Age: 83 Year
  Sex: Female
  Weight: 74.84 kg

DRUGS (14)
  1. METOPROLOL SUCCINATE [Suspect]
     Active Substance: METOPROLOL SUCCINATE
     Dosage: 30 TABS 1 DAILY  BY MOUTH??ESTIMATE OF DURATION : 10 DAYS (3 DAYS 1/2 DOSE
     Route: 048
     Dates: start: 20240131, end: 20240212
  2. Emalapril/HCTZ [Concomitant]
  3. NORVASC [Concomitant]
     Active Substance: AMLODIPINE BESYLATE
  4. Aspirin [Concomitant]
  5. MESALAMINE [Concomitant]
  6. ROSUVASTATIN [Concomitant]
  7. POTASSIUM [Concomitant]
     Active Substance: POTASSIUM
  8. ALLOPURINOL [Concomitant]
     Active Substance: ALLOPURINOL
  9. 5% Lidocaine patch (prn) [Concomitant]
  10. Epipen Proventil inhaler [Concomitant]
  11. OMEPRAZOLE [Concomitant]
     Active Substance: DONEPEZIL HYDROCHLORIDE\OMEPRAZOLE\OMEPRAZOLE MAGNESIUM
  12. LORATADINE [Concomitant]
     Active Substance: LORATADINE
  13. TYLENOL [Concomitant]
     Active Substance: ACETAMINOPHEN
  14. ALIGN [Concomitant]
     Active Substance: BIFIDOBACTERIUM LONGUM SUBSP. INFANTIS

REACTIONS (4)
  - Epistaxis [None]
  - Dizziness [None]
  - Facial pain [None]
  - Sinus pain [None]

NARRATIVE: CASE EVENT DATE: 20240131
